FAERS Safety Report 19120842 (Version 1)
Quarter: 2021Q2

REPORT INFORMATION
  Report Type: Spontaneous
  Country: GB (occurrence: GB)
  Receive Date: 20210412
  Receipt Date: 20210412
  Transmission Date: 20210717
  Serious: Yes (Disabling)
  Sender: FDA-Public Use
  Company Number: GB-ORGANON-O2104GBR000659

PATIENT
  Age: 24 Year
  Sex: Male

DRUGS (12)
  1. MIRTAZAPINE. [Suspect]
     Active Substance: MIRTAZAPINE
     Indication: ANTIDEPRESSANT THERAPY
     Dosage: 7.5 MILLIGRAM
     Route: 048
     Dates: start: 2014
  2. MIRTAZAPINE. [Suspect]
     Active Substance: MIRTAZAPINE
     Dosage: UP TITRATED TO 45 MILLIGRAM DAILY
     Route: 048
  3. ESCITALOPRAM [Suspect]
     Active Substance: ESCITALOPRAM OXALATE
     Indication: ANTIDEPRESSANT THERAPY
     Dosage: 10 MILLIGRAM DAILY
     Route: 048
     Dates: start: 201507, end: 201509
  4. RISPERIDONE. [Suspect]
     Active Substance: RISPERIDONE
     Indication: ILL-DEFINED DISORDER
     Dosage: UNK
     Route: 048
  5. TRAZODONE [Suspect]
     Active Substance: TRAZODONE HYDROCHLORIDE
     Dosage: INCREASED TO 100 MILLIGRAM DAILY
     Route: 048
  6. SERTRALINE [Suspect]
     Active Substance: SERTRALINE HYDROCHLORIDE
     Indication: ANTIDEPRESSANT THERAPY
     Dosage: 50 MILLIGRAM INITIALLY
     Dates: start: 2014
  7. SERTRALINE [Suspect]
     Active Substance: SERTRALINE HYDROCHLORIDE
     Dosage: 100MG
  8. TEMAZEPAM. [Suspect]
     Active Substance: TEMAZEPAM
     Indication: POOR QUALITY SLEEP
     Dosage: 10 MILLIGRAM DAILY
     Route: 048
  9. TRAZODONE [Suspect]
     Active Substance: TRAZODONE HYDROCHLORIDE
     Indication: ANTIDEPRESSANT THERAPY
     Dosage: 50 MILLIGRAM INITIALLY
     Route: 048
     Dates: start: 2015
  10. TRAZODONE [Suspect]
     Active Substance: TRAZODONE HYDROCHLORIDE
     Dosage: REDUCED TO 50 MILLIGRAM BEFORE STOPPING
     Route: 048
     Dates: end: 201507
  11. MIRTAZAPINE. [Suspect]
     Active Substance: MIRTAZAPINE
     Dosage: REDUCED DOWN TO STOP
     Route: 048
     Dates: end: 2015
  12. CITALOPRAM [Suspect]
     Active Substance: CITALOPRAM HYDROBROMIDE
     Indication: ILL-DEFINED DISORDER
     Dosage: 10 MG INITIALLY
     Route: 048
     Dates: start: 201507

REACTIONS (6)
  - Somnolence [Unknown]
  - Agitation [Unknown]
  - Homicidal ideation [Unknown]
  - Mood swings [Unknown]
  - Anger [Unknown]
  - Suicidal ideation [Unknown]
